FAERS Safety Report 20453286 (Version 1)
Quarter: 2022Q1

REPORT INFORMATION
  Report Type: Spontaneous
  Country: US (occurrence: US)
  Receive Date: 20220210
  Receipt Date: 20220210
  Transmission Date: 20220424
  Serious: No
  Sender: FDA-Public Use
  Company Number: US-CELGENE-USA-20220201375

PATIENT
  Sex: Female
  Weight: 51.756 kg

DRUGS (4)
  1. REVLIMID [Suspect]
     Active Substance: LENALIDOMIDE
     Indication: Plasma cell myeloma
     Dosage: 25 MILLIGRAM
     Route: 048
     Dates: start: 20210322
  2. REVLIMID [Suspect]
     Active Substance: LENALIDOMIDE
     Dosage: 10 MILLIGRAM
     Route: 048
     Dates: start: 202112, end: 20220125
  3. ASPIRIN [Concomitant]
     Active Substance: ASPIRIN
     Indication: Product used for unknown indication
     Route: 065
     Dates: end: 20220125
  4. ASPIRIN [Concomitant]
     Active Substance: ASPIRIN
     Indication: Chest pain

REACTIONS (6)
  - Upper-airway cough syndrome [Unknown]
  - Productive cough [Unknown]
  - Chest pain [Recovering/Resolving]
  - Cough [Unknown]
  - Pyrexia [Unknown]
  - Constipation [Unknown]
